FAERS Safety Report 16611435 (Version 2)
Quarter: 2019Q3

REPORT INFORMATION
  Report Type: Spontaneous
  Country: US (occurrence: US)
  Receive Date: 20190722
  Receipt Date: 20190830
  Transmission Date: 20191004
  Serious: No
  Sender: FDA-Public Use
  Company Number: US-PFIZER INC-2019309121

PATIENT
  Sex: Male

DRUGS (1)
  1. CLINDAMYCIN HCL [Suspect]
     Active Substance: CLINDAMYCIN HYDROCHLORIDE
     Indication: INFECTION
     Dosage: 300 G, 4X/DAY
     Route: 048

REACTIONS (2)
  - Drug hypersensitivity [Unknown]
  - Urticaria [Recovered/Resolved]
